FAERS Safety Report 5152272-6 (Version None)
Quarter: 2006Q4

REPORT INFORMATION
  Report Type: 
  Country: None (occurrence: None)
  Receive Date: 20061116
  Receipt Date: 20061110
  Transmission Date: 20070319
  Serious: Yes (Disabling, Other)
  Sender: FDA-Public Use
  Company Number: GB-MERCK-0611GBR00057

PATIENT
  Sex: Male

DRUGS (3)
  1. DECADRON [Suspect]
     Route: 065
  2. TIMOLOL MALEATE [Suspect]
     Route: 065
  3. CYCLOSPORINE [Concomitant]
     Route: 065

REACTIONS (2)
  - CORNEAL DEPOSITS [None]
  - VISUAL ACUITY REDUCED [None]
